FAERS Safety Report 16165076 (Version 1)
Quarter: 2019Q2

REPORT INFORMATION
  Report Type: Spontaneous
  Country: US (occurrence: US)
  Receive Date: 20190405
  Receipt Date: 20190405
  Transmission Date: 20190711
  Serious: No
  Sender: FDA-Public Use
  Company Number: US-NEUROCRINE BIOSCIENCES INC.-2019NBI00771

PATIENT
  Sex: Female

DRUGS (4)
  1. DEPAKOTE ER [Concomitant]
     Active Substance: DIVALPROEX SODIUM
  2. ABILIFY [Concomitant]
     Active Substance: ARIPIPRAZOLE
  3. INGREZZA [Suspect]
     Active Substance: VALBENAZINE
     Indication: TARDIVE DYSKINESIA
     Dates: start: 2018
  4. INGREZZA [Suspect]
     Active Substance: VALBENAZINE

REACTIONS (2)
  - Memory impairment [Unknown]
  - Tremor [Unknown]
